FAERS Safety Report 4788652-8 (Version None)
Quarter: 2005Q4

REPORT INFORMATION
  Report Type: 
  Country: None (occurrence: None)
  Receive Date: 20051005
  Receipt Date: 20050929
  Transmission Date: 20060501
  Serious: Yes (Hospitalization)
  Sender: FDA-Public Use
  Company Number: 04P-167-0280822-00

PATIENT
  Age: 59 Year

DRUGS (4)
  1. AMOXICILLIN [Suspect]
     Indication: HELICOBACTER INFECTION
     Dosage: 1G TWICE PER DAY
     Route: 048
     Dates: start: 20020222
  2. LANSOPRAZOLE [Suspect]
     Indication: HELICOBACTER INFECTION
     Dosage: 30MG TWICE PER DAY
     Route: 048
     Dates: start: 20020222
  3. KLARICID [Suspect]
     Indication: HELICOBACTER INFECTION
     Dosage: 500MG TWICE PER DAY
     Route: 048
     Dates: start: 20020222
  4. DICLOFENAC [Concomitant]
     Indication: ARTHRALGIA
     Route: 065

REACTIONS (6)
  - BLOOD BILIRUBIN DECREASED [None]
  - CHOLESTASIS [None]
  - GAMMA-GLUTAMYLTRANSFERASE DECREASED [None]
  - HEPATOTOXICITY [None]
  - JAUNDICE [None]
  - LIVER FUNCTION TEST ABNORMAL [None]
